FAERS Safety Report 20703593 (Version 1)
Quarter: 2022Q2

REPORT INFORMATION
  Report Type: Spontaneous
  Country: CY (occurrence: CY)
  Receive Date: 20220413
  Receipt Date: 20220413
  Transmission Date: 20220721
  Serious: No
  Sender: FDA-Public Use
  Company Number: CY-LUPIN PHARMACEUTICALS INC.-2022-05333

PATIENT
  Age: 23 Year
  Sex: Female

DRUGS (6)
  1. BUDESONIDE [Suspect]
     Active Substance: BUDESONIDE
     Indication: Bronchitis
     Dosage: UNK
     Route: 045
  2. BUDESONIDE [Suspect]
     Active Substance: BUDESONIDE
     Indication: Skin test
  3. BUDESONIDE\FORMOTEROL [Suspect]
     Active Substance: BUDESONIDE\FORMOTEROL
     Indication: Bronchitis
     Dosage: UNK
     Route: 055
  4. FLUTICASONE [Concomitant]
     Active Substance: FLUTICASONE
     Indication: Bronchitis
     Dosage: UNK
     Route: 045
  5. DESLORATADINE [Concomitant]
     Active Substance: DESLORATADINE
     Indication: Bronchitis
     Dosage: 5 MG
     Route: 065
  6. MONTELUKAST [Concomitant]
     Active Substance: MONTELUKAST SODIUM
     Indication: Bronchitis
     Dosage: 10 MG
     Route: 065

REACTIONS (2)
  - Dermatitis allergic [Recovered/Resolved]
  - Hypersensitivity [Recovered/Resolved]
